FAERS Safety Report 17429030 (Version 1)
Quarter: 2020Q1

REPORT INFORMATION
  Report Type: Spontaneous
  Country: US (occurrence: US)
  Receive Date: 20200131
  Receipt Date: 20200131
  Transmission Date: 20200409
  Serious: No
  Sender: FDA-Public Use
  Company Number: None

PATIENT
  Age: 54 Year
  Sex: Male

DRUGS (4)
  1. ALEVE [Suspect]
     Active Substance: NAPROXEN SODIUM
  2. MULTI7 [Concomitant]
  3. TRIAMCINOLONE ACETONIDE CREAM [Suspect]
     Active Substance: TRIAMCINOLONE ACETONIDE
  4. NAPROXEN 375 I39 [Suspect]
     Active Substance: NAPROXEN
     Indication: FUNGAL SKIN INFECTION
     Route: 061
     Dates: start: 20200108, end: 20200115

REACTIONS (2)
  - Urticaria [None]
  - Neoplasm [None]

NARRATIVE: CASE EVENT DATE: 20200131
